FAERS Safety Report 17635897 (Version 1)
Quarter: 2020Q2

REPORT INFORMATION
  Report Type: Spontaneous
  Country: US (occurrence: US)
  Receive Date: 20200407
  Receipt Date: 20200407
  Transmission Date: 20200713
  Serious: Yes (Hospitalization, Other)
  Sender: FDA-Public Use
  Company Number: US-ACTELION-A-CH2020-203887

PATIENT

DRUGS (6)
  1. SILDENAFIL. [Concomitant]
     Active Substance: SILDENAFIL
     Indication: PULMONARY HYPERTENSION
  2. TADALAFIL. [Concomitant]
     Active Substance: TADALAFIL
     Indication: PULMONARY HYPERTENSION
  3. BOSENTAN. [Concomitant]
     Active Substance: BOSENTAN
     Indication: PULMONARY HYPERTENSION
     Route: 048
  4. UPTRAVI [Suspect]
     Active Substance: SELEXIPAG
     Indication: PULMONARY HYPERTENSION
     Dosage: UNK
     Route: 048
     Dates: start: 201802
  5. AMBRISENTAN [Concomitant]
     Active Substance: AMBRISENTAN
     Indication: PULMONARY HYPERTENSION
  6. OPSUMIT [Concomitant]
     Active Substance: MACITENTAN
     Indication: PULMONARY HYPERTENSION
     Route: 048

REACTIONS (17)
  - Pulmonary hypertension [Unknown]
  - Headache [Unknown]
  - Dizziness [Unknown]
  - Catheterisation cardiac [Unknown]
  - Hypotension [Unknown]
  - Rash [Unknown]
  - Back pain [Unknown]
  - Transplant evaluation [Unknown]
  - Vomiting [Unknown]
  - Abdominal pain [Unknown]
  - Flushing [Unknown]
  - Syncope [Unknown]
  - Vascular resistance pulmonary increased [Unknown]
  - Pain in jaw [Unknown]
  - Irritability [Unknown]
  - Diarrhoea [Unknown]
  - Nausea [Unknown]
